FAERS Safety Report 16107900 (Version 1)
Quarter: 2019Q1

REPORT INFORMATION
  Report Type: Other
  Country: GB (occurrence: GB)
  Receive Date: 20190322
  Receipt Date: 20190322
  Transmission Date: 20190418
  Serious: Yes (Other)
  Sender: FDA-Public Use
  Company Number: GB-GE HEALTHCARE LIFE SCIENCES-2019CSU001599

PATIENT

DRUGS (4)
  1. OMNIPAQUE [Suspect]
     Active Substance: IOHEXOL
     Indication: PRODUCT USED FOR UNKNOWN INDICATION
  2. OMNIPAQUE [Suspect]
     Active Substance: IOHEXOL
     Indication: COMPUTERISED TOMOGRAM
     Dosage: 60 ML, SINGLE
     Route: 042
     Dates: start: 20190115, end: 20190115
  3. METOPROLOL. [Suspect]
     Active Substance: METOPROLOL
     Indication: PRODUCT USED FOR UNKNOWN INDICATION
  4. METOPROLOL. [Suspect]
     Active Substance: METOPROLOL
     Indication: COMPUTERISED TOMOGRAM
     Route: 042
     Dates: start: 20190115, end: 20190115

REACTIONS (4)
  - Pain in extremity [Recovered/Resolved]
  - Drooling [Recovered/Resolved]
  - Headache [Recovered/Resolved]
  - Unresponsive to stimuli [Recovered/Resolved]

NARRATIVE: CASE EVENT DATE: 20190115
